FAERS Safety Report 9851357 (Version 1)
Quarter: 2014Q1

REPORT INFORMATION
  Report Type: Spontaneous
  Country: FR (occurrence: FR)
  Receive Date: 20140129
  Receipt Date: 20140129
  Transmission Date: 20141002
  Serious: Yes (Hospitalization)
  Sender: FDA-Public Use
  Company Number: FR-ROCHE-1336760

PATIENT
  Age: 59 Year
  Sex: Female

DRUGS (5)
  1. AVASTIN [Suspect]
     Indication: COLON CANCER METASTATIC
     Route: 042
     Dates: start: 20130806
  2. FLUOROURACILE [Suspect]
     Indication: COLON CANCER METASTATIC
     Route: 042
     Dates: start: 20130806
  3. ATROPINE SULFATE [Suspect]
     Indication: COLON CANCER METASTATIC
     Route: 051
     Dates: start: 20130806
  4. CALCIUM FOLINATE [Suspect]
     Indication: COLON CANCER METASTATIC
     Route: 042
     Dates: start: 20130806
  5. IRINOTECAN HYDROCHLORIDE [Suspect]
     Indication: COLON CANCER METASTATIC
     Route: 042
     Dates: start: 20131015, end: 20131015

REACTIONS (4)
  - Nausea [Recovered/Resolved]
  - Vomiting [Recovered/Resolved]
  - Diarrhoea [Recovered/Resolved]
  - Electrolyte imbalance [Recovered/Resolved]
